FAERS Safety Report 9891884 (Version 2)
Quarter: 2014Q1

REPORT INFORMATION
  Report Type: Spontaneous
  Country: JP (occurrence: JP)
  Receive Date: 20140212
  Receipt Date: 20140306
  Transmission Date: 20141002
  Serious: Yes (Death, Other)
  Sender: FDA-Public Use
  Company Number: PHHY2014JP016095

PATIENT
  Age: 42 Year
  Sex: Male

DRUGS (9)
  1. CICLOSPORIN [Suspect]
     Indication: PROPHYLAXIS AGAINST GRAFT VERSUS HOST DISEASE
  2. CICLOSPORIN [Interacting]
     Indication: BONE MARROW TRANSPLANT
  3. TOLVAPTAN [Interacting]
     Dosage: 3.75 MG, UNK
  4. TOLVAPTAN [Interacting]
     Dosage: 7.5 MG, UNK
  5. MYCOPHENOLATE MOFETIL [Suspect]
     Indication: PROPHYLAXIS AGAINST GRAFT VERSUS HOST DISEASE
  6. FUROSEMIDE [Suspect]
  7. BUSULFAN [Concomitant]
     Dosage: 3.2 MG/KG, FOR 4 DAYS (TOTAL DOSE OF 12.8 MG/KG)
  8. CYCLOPHOSPHAMIDE [Concomitant]
     Dosage: 60 MG/KG, FOR 2 DAYS (TOTAL DOSE 120 MG/KG)
  9. URSODEOXYCHOLIC AC [Concomitant]
     Indication: PROPHYLAXIS
     Dosage: 300 MG, PER DAY

REACTIONS (10)
  - Lymphoma [Fatal]
  - Disease progression [Fatal]
  - Blast cells [Unknown]
  - Blood bilirubin increased [Unknown]
  - Cardiopulmonary failure [Unknown]
  - Renal failure [Unknown]
  - Hypernatraemia [Unknown]
  - Venoocclusive liver disease [Unknown]
  - Drug interaction [Unknown]
  - Drug ineffective [Unknown]
